FAERS Safety Report 7151730-2 (Version None)
Quarter: 2010Q4

REPORT INFORMATION
  Report Type: 
  Country: None (occurrence: None)
  Receive Date: 20101210
  Receipt Date: 20101203
  Transmission Date: 20110411
  Serious: Yes (Life-Threatening, Hospitalization)
  Sender: FDA-Public Use
  Company Number: PHHY2010JP80678

PATIENT
  Sex: Female
  Weight: 52 kg

DRUGS (7)
  1. GLEEVEC [Suspect]
     Indication: GASTROINTESTINAL STROMAL TUMOUR
     Dosage: 400 MG/DAY
     Route: 048
     Dates: start: 20100927, end: 20101004
  2. GLEEVEC [Suspect]
     Dosage: 400 MG/DAY
     Route: 048
     Dates: start: 20101110
  3. DOGMATYL [Concomitant]
     Indication: ANXIETY DISORDER
     Dosage: 150 MG, UNK
     Route: 048
     Dates: start: 20100918, end: 20101004
  4. AMLODIN [Concomitant]
     Indication: HYPERTENSION
     Dosage: 2.5 MG, UNK
     Route: 048
  5. FRESH FROZEN PLASMA [Concomitant]
     Dosage: 6 UNITS
     Dates: start: 20101004
  6. RED BLOOD CELLS [Concomitant]
     Dosage: 8 UNITS
     Dates: start: 20101004
  7. PLATELETS [Concomitant]
     Dosage: 20 UNITS
     Dates: start: 20101004

REACTIONS (9)
  - BACK PAIN [None]
  - HEPATECTOMY [None]
  - INTRA-ABDOMINAL HAEMORRHAGE [None]
  - NAUSEA [None]
  - PLATELET COUNT DECREASED [None]
  - SHOCK HAEMORRHAGIC [None]
  - THERAPEUTIC EMBOLISATION [None]
  - TUMOUR HAEMORRHAGE [None]
  - TUMOUR RUPTURE [None]
